FAERS Safety Report 5943916-7 (Version None)
Quarter: 2008Q4

REPORT INFORMATION
  Report Type: 
  Country: None (occurrence: None)
  Receive Date: 20081106
  Receipt Date: 20081104
  Transmission Date: 20090506
  Serious: Yes (Death, Hospitalization)
  Sender: FDA-Public Use
  Company Number: JP-ASTRAZENECA-2008AP07356

PATIENT
  Age: 83 Year
  Sex: Female
  Weight: 49 kg

DRUGS (8)
  1. IRESSA [Suspect]
     Indication: LUNG ADENOCARCINOMA
     Route: 048
     Dates: start: 20080710, end: 20080810
  2. KAMAG G [Concomitant]
     Route: 048
     Dates: start: 20080626, end: 20080817
  3. PURSENNID [Concomitant]
     Route: 048
     Dates: start: 20080626, end: 20080817
  4. LULLAN [Concomitant]
     Route: 048
     Dates: start: 20080626, end: 20080817
  5. URSO 250 [Concomitant]
     Route: 048
     Dates: start: 20080710, end: 20080817
  6. OXYCONTIN [Concomitant]
     Route: 048
     Dates: start: 20080626, end: 20080817
  7. PICIBANIL [Concomitant]
     Indication: PLEURAL EFFUSION
     Dosage: 5 KE
     Route: 038
     Dates: start: 20080731, end: 20080731
  8. MINOCYCLINE HCL [Concomitant]
     Indication: PLEURAL EFFUSION
     Route: 038
     Dates: start: 20080731, end: 20080731

REACTIONS (3)
  - CEREBELLAR INFARCTION [None]
  - INTERSTITIAL LUNG DISEASE [None]
  - LIVER DISORDER [None]
